FAERS Safety Report 5278349-2 (Version None)
Quarter: 2007Q1

REPORT INFORMATION
  Report Type: 
  Country: None (occurrence: None)
  Receive Date: 20061213
  Receipt Date: 20031201
  Transmission Date: 20070707
  Serious: No
  Sender: FDA-Public Use
  Company Number: 2003AP04288

PATIENT
  Age: 10 Year
  Sex: Female

DRUGS (1)
  1. QUETIAPINE FUMARATE [Suspect]
     Indication: PSYCHOTIC DISORDER
     Dosage: 150 MG BID

REACTIONS (1)
  - EXTRAPYRAMIDAL DISORDER [None]
